FAERS Safety Report 23257256 (Version 1)
Quarter: 2023Q4

REPORT INFORMATION
  Report Type: Spontaneous
  Country: GR (occurrence: GR)
  Receive Date: 20231204
  Receipt Date: 20231204
  Transmission Date: 20240110
  Serious: Yes (Other)
  Sender: FDA-Public Use
  Company Number: GR-OPELLA-2023OHG017370

PATIENT
  Age: 27 Year
  Sex: Female

DRUGS (5)
  1. LEVOCETIRIZINE HYDROCHLORIDE [Suspect]
     Active Substance: LEVOCETIRIZINE HYDROCHLORIDE
     Indication: Rash
     Route: 065
  2. METHYLPREDNISOLONE [Suspect]
     Active Substance: METHYLPREDNISOLONE
     Indication: Rash
     Route: 065
  3. ACYCLOVIR [Suspect]
     Active Substance: ACYCLOVIR
     Indication: Meningitis aseptic
     Route: 065
  4. DOXYCYCLINE [Suspect]
     Active Substance: DOXYCYCLINE
     Indication: Leptospirosis
     Route: 065
  5. CLINDAMYCIN PHOSPHATE [Suspect]
     Active Substance: CLINDAMYCIN PHOSPHATE
     Indication: Capnocytophaga infection
     Route: 065

REACTIONS (7)
  - Cutaneous vasculitis [Unknown]
  - Hypoxia [Unknown]
  - Myocarditis [Unknown]
  - Enzyme level increased [Unknown]
  - Orthopnoea [Unknown]
  - Brain natriuretic peptide increased [Unknown]
  - Off label use [Unknown]
